FAERS Safety Report 9474222 (Version 1)
Quarter: 2013Q3

REPORT INFORMATION
  Report Type: Spontaneous
  Country: ZA (occurrence: None)
  Receive Date: 20130820
  Receipt Date: 20130820
  Transmission Date: 20140515
  Serious: Yes (Death)
  Sender: FDA-Public Use
  Company Number: 1646903

PATIENT
  Sex: 0

DRUGS (12)
  1. NORADRENALINE TARTRATE [Suspect]
     Indication: CARDIOGENIC SHOCK
     Dates: start: 20120415, end: 20120417
  2. PHENYLEPHRINE [Concomitant]
  3. PROPRANOLOL [Concomitant]
  4. ASPIRIN [Concomitant]
  5. MONTELUKAST [Concomitant]
  6. MEROPENEM [Concomitant]
  7. IMMUNOGLOBULIN /00025201/ [Concomitant]
  8. VANCOMYCIN [Concomitant]
  9. HYDROCORTISONE [Concomitant]
  10. PREDNISONE [Concomitant]
  11. BACTRIM [Concomitant]
  12. MORPHINE [Concomitant]

REACTIONS (4)
  - No therapeutic response [None]
  - Pulmonary artery stenosis [None]
  - Right ventricular failure [None]
  - Platelet count decreased [None]
